FAERS Safety Report 7444771-9 (Version None)
Quarter: 2011Q2

REPORT INFORMATION
  Report Type: 
  Country: None (occurrence: None)
  Receive Date: 20110426
  Receipt Date: 20110426
  Transmission Date: 20111010
  Serious: Yes (Death)
  Sender: FDA-Public Use
  Company Number: None

PATIENT
  Age: 64 Year
  Sex: Male

DRUGS (6)
  1. PRINIVIL [Concomitant]
  2. SIMVASTATIN [Concomitant]
  3. PROAIR HFA [Concomitant]
  4. IBUPROFEN [Concomitant]
  5. REVLIMID [Suspect]
     Indication: MYELODYSPLASTIC SYNDROME
     Dosage: 10MG DAILY ORALLY
     Route: 048
     Dates: start: 20100817, end: 20101005
  6. VICODIN [Concomitant]

REACTIONS (8)
  - ACUTE MYELOID LEUKAEMIA [None]
  - DISEASE PROGRESSION [None]
  - PANCYTOPENIA [None]
  - ACUTE RESPIRATORY DISTRESS SYNDROME [None]
  - MYELODYSPLASTIC SYNDROME [None]
  - MULTI-ORGAN FAILURE [None]
  - RENAL FAILURE [None]
  - INFECTION [None]
